FAERS Safety Report 5535496-5 (Version None)
Quarter: 2007Q4

REPORT INFORMATION
  Report Type: 
  Country: None (occurrence: None)
  Receive Date: 20071203
  Receipt Date: 20071203
  Transmission Date: 20080405
  Serious: Yes (Hospitalization, Disabling)
  Sender: FDA-Public Use
  Company Number: None

PATIENT
  Age: 40 Year
  Sex: Male

DRUGS (1)
  1. SEPTRA DS [Suspect]
     Indication: EPIDIDYMITIS
     Dosage: 1 TABLET  BID  PO
     Route: 048
     Dates: start: 20071105, end: 20071113

REACTIONS (1)
  - STEVENS-JOHNSON SYNDROME [None]
